FAERS Safety Report 5007538-7 (Version None)
Quarter: 2006Q2

REPORT INFORMATION
  Report Type: 
  Country: None (occurrence: None)
  Receive Date: 20060522
  Receipt Date: 20051124
  Transmission Date: 20061013
  Serious: Yes (Death, Life-Threatening)
  Sender: FDA-Public Use
  Company Number: PHBS2005JP17440

PATIENT
  Age: 23 Year
  Sex: Female
  Weight: 52 kg

DRUGS (14)
  1. GLEEVEC [Suspect]
     Indication: ACUTE LYMPHOCYTIC LEUKAEMIA RECURRENT
     Dosage: 300 MG/D
     Route: 048
     Dates: start: 20051031, end: 20051125
  2. GLEEVEC [Suspect]
     Dosage: 400 MG/D
     Route: 048
     Dates: start: 20051126, end: 20051207
  3. GLEEVEC [Suspect]
     Dosage: 300 MG/D
     Route: 048
     Dates: start: 20051208, end: 20051214
  4. GLEEVEC [Suspect]
     Dosage: 400 MG/D
     Route: 048
     Dates: start: 20051215, end: 20051225
  5. GLEEVEC [Suspect]
     Dosage: 200 MG/D
     Route: 048
     Dates: start: 20050824, end: 20051030
  6. PROGRAF [Concomitant]
     Indication: GRAFT VERSUS HOST DISEASE
     Dosage: 0.2 MG/D
     Route: 048
     Dates: start: 20050530, end: 20051225
  7. CELLCEPT [Concomitant]
     Indication: GRAFT VERSUS HOST DISEASE
     Dosage: 250 MG/D
     Route: 048
     Dates: start: 20050909, end: 20051225
  8. DOGMATYL [Concomitant]
     Indication: RESTLESSNESS
     Dosage: 100 MG/D
     Route: 048
     Dates: start: 20050908, end: 20051225
  9. CELESTAMINE TAB [Concomitant]
     Indication: PRURITUS
     Dosage: 2 DF/D
     Route: 048
     Dates: start: 20050811, end: 20051225
  10. TOLEDOMIN [Concomitant]
     Dosage: 30 MG/D
     Route: 048
     Dates: start: 20050922, end: 20051225
  11. DIOVAN [Concomitant]
     Indication: HYPERTENSION
     Dosage: 80 MG/D
     Route: 048
     Dates: start: 20051004, end: 20051225
  12. AKINETON [Concomitant]
     Indication: PARKINSONISM
     Dosage: 2 MG/D
     Route: 048
     Dates: start: 20051010, end: 20051225
  13. VFEND [Concomitant]
     Indication: SYSTEMIC MYCOSIS
     Dosage: 400 MG/D
     Route: 048
     Dates: start: 20051111, end: 20051113
  14. PREDONINE [Concomitant]
     Indication: GRAFT VERSUS HOST DISEASE
     Dosage: 10 MG/D
     Route: 041
     Dates: start: 20050611, end: 20051225

REACTIONS (7)
  - ABDOMINAL PAIN [None]
  - ASCITES [None]
  - BLOOD BETA-D-GLUCAN INCREASED [None]
  - MALIGNANT ASCITES [None]
  - PLEURAL EFFUSION [None]
  - RENAL FAILURE [None]
  - RESTLESSNESS [None]
